FAERS Safety Report 24083545 (Version 1)
Quarter: 2024Q3

REPORT INFORMATION
  Report Type: Spontaneous
  Country: GB (occurrence: GB)
  Receive Date: 20240712
  Receipt Date: 20240712
  Transmission Date: 20241017
  Serious: Yes (Other)
  Sender: ABBVIE
  Company Number: None

PATIENT
  Sex: Female

DRUGS (1)
  1. CITALOPRAM HYDROBROMIDE [Suspect]
     Active Substance: CITALOPRAM HYDROBROMIDE
     Indication: Depression
     Dosage: VARIES OVER THE YEARS FROM 10MG A NIGHT TO 40MG A NIGHT
     Route: 065
     Dates: start: 2010, end: 2020

REACTIONS (2)
  - Memory impairment [Not Recovered/Not Resolved]
  - Blunted affect [Unknown]

NARRATIVE: CASE EVENT DATE: 20100101
